FAERS Safety Report 8215621-8 (Version None)
Quarter: 2012Q1

REPORT INFORMATION
  Report Type: 
  Country: None (occurrence: None)
  Receive Date: 20120316
  Receipt Date: 20120312
  Transmission Date: 20120608
  Serious: Yes (Death, Hospitalization, Other)
  Sender: FDA-Public Use
  Company Number: MX-ELI_LILLY_AND_COMPANY-MX201203003121

PATIENT
  Sex: Female

DRUGS (1)
  1. GEMZAR [Suspect]
     Dosage: 1.5 MG, UNKNOWN
     Route: 065
     Dates: start: 20120201

REACTIONS (4)
  - INTESTINAL PERFORATION [None]
  - LEUKOPENIA [None]
  - NEUTROPENIA [None]
  - HYPOVOLAEMIC SHOCK [None]
